FAERS Safety Report 8805927 (Version 3)
Quarter: 2012Q4

REPORT INFORMATION
  Report Type: Spontaneous
  Country: DK (occurrence: None)
  Receive Date: 20120918
  Receipt Date: 20121025
  Transmission Date: 20130627
  Serious: Yes (Other)
  Sender: FDA-Public Use
  Company Number: 2012MA011187

PATIENT
  Age: 52 Year
  Sex: Male
  Weight: 74.39 kg

DRUGS (6)
  1. RAMIPRIL [Suspect]
     Indication: BLOOD PRESSURE INCREASED
     Route: 048
     Dates: start: 20120509, end: 20120813
  2. EZETIMIBE [Concomitant]
  3. GLICLAZIDE [Concomitant]
  4. BECONASE [Concomitant]
  5. FLIXOTIDE [Concomitant]
  6. NAPROXEN [Concomitant]

REACTIONS (5)
  - Drug ineffective [None]
  - Blood pressure increased [None]
  - Dysgeusia [None]
  - Product quality issue [None]
  - Product taste abnormal [None]
